FAERS Safety Report 19389984 (Version 2)
Quarter: 2021Q2

REPORT INFORMATION
  Report Type: Spontaneous
  Country: NL (occurrence: NL)
  Receive Date: 20210608
  Receipt Date: 20210609
  Transmission Date: 20210717
  Serious: Yes (Life-Threatening, Hospitalization)
  Sender: FDA-Public Use
  Company Number: NL-ROCHE-2840900

PATIENT
  Age: 71 Year
  Sex: Male
  Weight: 82.5 kg

DRUGS (4)
  1. OXALIPLATINE [Suspect]
     Active Substance: OXALIPLATIN
     Indication: RECTOSIGMOID CANCER METASTATIC
     Dosage: 2E CYCLUS CAPOX OP 01?04?2021
     Route: 065
     Dates: start: 20210312, end: 20210401
  2. ALGELDRAAT [Concomitant]
     Dosage: SUSPENSIE, 40/20 MG/ML (MILLIGRAM PER MILLILITER)
  3. CAPECITABINE. [Suspect]
     Active Substance: CAPECITABINE
     Indication: RECTOSIGMOID CANCER METASTATIC
     Dosage: 2E CYCLUS CAPOX OP 01?04?2021
     Route: 048
     Dates: start: 20210312, end: 20210401
  4. MACROGOL [Concomitant]
     Active Substance: POLYETHYLENE GLYCOLS
     Dosage: POEDER VOOR DRANK

REACTIONS (1)
  - Pneumatosis intestinalis [Recovering/Resolving]

NARRATIVE: CASE EVENT DATE: 20210412
